FAERS Safety Report 5630548-3 (Version None)
Quarter: 2008Q1

REPORT INFORMATION
  Report Type: 
  Country: None (occurrence: None)
  Receive Date: 20080219
  Receipt Date: 20080205
  Transmission Date: 20080703
  Serious: Yes (Death, Life-Threatening, Hospitalization)
  Sender: FDA-Public Use
  Company Number: PL-AVENTIS-200719429GDDC

PATIENT
  Age: 61 Year
  Sex: Female
  Weight: 75 kg

DRUGS (4)
  1. ARAVA [Suspect]
     Indication: RHEUMATOID ARTHRITIS
     Route: 048
     Dates: start: 20060202, end: 20070701
  2. ENCORTON [Concomitant]
     Indication: RHEUMATOID ARTHRITIS
     Dosage: DOSE: 5 - 7.5
     Route: 048
  3. NSAID'S [Concomitant]
     Dosage: DOSE: UNK
  4. DICLOFENAC SODIUM [Concomitant]
     Dosage: DOSE: 50 MG ONCE OR TWICE WEEKLY
     Dates: end: 20070801

REACTIONS (6)
  - ANTI FACTOR VIII ANTIBODY POSITIVE [None]
  - ANTI FACTOR XII ANTIBODY POSITIVE [None]
  - COAGULOPATHY [None]
  - HAEMATOMA [None]
  - HYPOVOLAEMIC SHOCK [None]
  - MULTI-ORGAN FAILURE [None]
